FAERS Safety Report 13185527 (Version 3)
Quarter: 2020Q3

REPORT INFORMATION
  Report Type: Report from Study
  Country: JP (occurrence: JP)
  Receive Date: 20170203
  Receipt Date: 20170427
  Transmission Date: 20201104
  Serious: Yes (Death, Life-Threatening, Hospitalization, Other)
  Sender: FDA-Public Use
  Company Number: JP-PFIZER INC-2016577426

PATIENT
  Age: 75 Year
  Sex: Male
  Weight: 60 kg

DRUGS (33)
  1. BAYASPIRIN [Suspect]
     Active Substance: ASPIRIN
     Indication: PERIPHERAL ARTERIAL OCCLUSIVE DISEASE
  2. MOHRUS [Concomitant]
     Active Substance: KETOPROFEN
     Dosage: 120 MG, UNK
     Dates: end: 20161208
  3. RISUMIC [Concomitant]
     Active Substance: AMEZINIUM METILSULFATE
     Dosage: 10 MG, UNK
     Dates: end: 20161205
  4. TERPERAN [Concomitant]
     Active Substance: METOCLOPRAMIDE HYDROCHLORIDE
     Dosage: 10 MG, UNK
     Dates: start: 20161204, end: 20161204
  5. SOLU?MEDROL [Concomitant]
     Active Substance: METHYLPREDNISOLONE SODIUM SUCCINATE
     Dosage: 1000 MG, UNK
     Dates: start: 20161205, end: 20161208
  6. SOLITA?T1 [Concomitant]
     Dosage: 500 ML, UNK
     Dates: start: 20161203, end: 20161205
  7. MEDLENIK [Concomitant]
     Active Substance: CUPRIC SULFATE\FERRIC CHLORIDE\MANGANESE CHLORIDE\POTASSIUM IODIDE\ZINC SULFATE
     Dosage: UNK
     Route: 065
  8. KINEDAK [Suspect]
     Active Substance: EPALRESTAT
     Indication: DIABETIC NEUROPATHY
     Dosage: 50 MG, THRICE DAILY AFTER EVERY MEALS
     Route: 048
     Dates: start: 200009, end: 20161204
  9. BASEN /01290601/ [Suspect]
     Active Substance: VOGLIBOSE
     Indication: DIABETES MELLITUS
     Dosage: 0.3 MG, THRICE DAILY, JUST BEFORE EVERY MEAL
     Route: 048
     Dates: start: 20060220, end: 20161204
  10. NEOAMIYU [Suspect]
     Active Substance: AMINO ACIDS, SOURCE UNSPECIFIED
     Dosage: 400 ML, 1X/DAY
     Route: 065
     Dates: start: 20161206, end: 20161208
  11. ALBUMINAR [Concomitant]
     Active Substance: ALBUMIN HUMAN
     Dosage: 50 ML, UNK
     Dates: start: 20161205, end: 20161205
  12. AVAPRO [Suspect]
     Active Substance: IRBESARTAN
     Dosage: 100 MG, 1X/DAY
     Route: 048
     Dates: start: 20161130, end: 20161204
  13. FERROUS SULFATE. [Suspect]
     Active Substance: FERROUS SULFATE
     Indication: IRON DEFICIENCY ANAEMIA
     Dosage: 105 MG, ONCE DAILY, AFTER BREAFAST
     Route: 048
     Dates: start: 20100406, end: 20161205
  14. NEUART [Concomitant]
     Active Substance: ANTITHROMBIN III HUMAN
     Dosage: 1500 IU, UNK
     Dates: start: 20161205, end: 20161207
  15. AVAPRO [Suspect]
     Active Substance: IRBESARTAN
     Indication: HYPERTENSION
     Dosage: 200 MG, 1X/DAY
     Route: 048
     Dates: start: 20110705, end: 20161129
  16. GLUCOSE [Concomitant]
     Active Substance: DEXTROSE
     Dosage: UNK
     Dates: start: 20161203, end: 20161205
  17. NORVASC [Suspect]
     Active Substance: AMLODIPINE BESYLATE
     Dosage: 5 MG, ONCE DAILY,AFTER BREAKFAST UNKNOWN
     Route: 048
     Dates: start: 20161129, end: 20161204
  18. ALFAROL [Suspect]
     Active Substance: ALFACALCIDOL
     Indication: CHRONIC KIDNEY DISEASE
     Dosage: 0.25 UG, 1X/DAY
     Route: 048
     Dates: start: 20060123, end: 20161204
  19. PLAVIX [Suspect]
     Active Substance: CLOPIDOGREL BISULFATE
     Indication: PERIPHERAL ARTERIAL OCCLUSIVE DISEASE
     Dosage: 75 MG, ONCE DAILY. AFTER BREAKFAST
     Route: 048
     Dates: start: 20160720, end: 20161204
  20. PLAVIX [Suspect]
     Active Substance: CLOPIDOGREL BISULFATE
     Indication: PERIPHERAL ARTERIAL OCCLUSIVE DISEASE
  21. NEOAMIYU [Suspect]
     Active Substance: AMINO ACIDS, SOURCE UNSPECIFIED
     Indication: DECREASED APPETITE
     Dosage: 400 ML, 1X/DAY
     Route: 042
     Dates: start: 20161202, end: 20161204
  22. STRONGER NEO?MINOPHAGEN C [Concomitant]
     Active Substance: AMMONIUM GLYCYRRHIZATE\CYSTEINE HYDROCHLORIDE\GLYCINE
     Dosage: 20 ML, UNK
     Dates: start: 20161204, end: 20161208
  23. VITAMEDIN /00176001/ [Concomitant]
     Dosage: UNK
     Dates: start: 20161203, end: 20161205
  24. NEXIUM [Suspect]
     Active Substance: ESOMEPRAZOLE MAGNESIUM
     Indication: PROPHYLAXIS AGAINST GASTROINTESTINAL ULCER
     Dosage: 20 MG, ONCE DAILY AFTER DINNER
     Route: 048
     Dates: start: 20121016, end: 20161205
  25. HIRUDOID MILD [Concomitant]
     Dosage: UNK
     Dates: end: 20161208
  26. PHOSBLOCK [Suspect]
     Active Substance: FERRIC HYDROXIDE
     Indication: CHRONIC KIDNEY DISEASE
     Dosage: 250 MG, TWICE DAILY AFTER BREAKFAST
     Route: 048
     Dates: start: 20110405, end: 20161204
  27. BROTIZOLAM [Concomitant]
     Active Substance: BROTIZOLAM
     Dosage: 0.25 MG, UNK
     Dates: start: 20161204, end: 20161204
  28. NORADRENALINE /00127501/ [Concomitant]
     Active Substance: NOREPINEPHRINE
     Dosage: UNK
  29. NORVASC [Suspect]
     Active Substance: AMLODIPINE BESYLATE
     Indication: HYPERTENSION
     Dosage: 10 MG, 1X/DAY
     Route: 048
     Dates: start: 20100614, end: 20161128
  30. BAYASPIRIN [Suspect]
     Active Substance: ASPIRIN
     Indication: PERIPHERAL ARTERIAL OCCLUSIVE DISEASE
     Dosage: 100 MG, ONCE DAILY AFTER BREAKFAST
     Route: 048
     Dates: start: 20040309, end: 20161205
  31. NEOAMIYU [Suspect]
     Active Substance: AMINO ACIDS, SOURCE UNSPECIFIED
     Dosage: 800 ML, 1X/DAY
     Route: 065
     Dates: start: 20161205, end: 20161205
  32. HEPARIN SODIUM. [Concomitant]
     Active Substance: HEPARIN SODIUM
     Dosage: 5 ML, UNK
     Dates: start: 20161205, end: 20161208
  33. NEOLAMIN [Concomitant]
     Dosage: UNK
     Route: 065

REACTIONS (4)
  - Cardiac failure congestive [Not Recovered/Not Resolved]
  - Congestive hepatopathy [Not Recovered/Not Resolved]
  - Lactic acidosis [Fatal]
  - Decreased appetite [Not Recovered/Not Resolved]

NARRATIVE: CASE EVENT DATE: 20161128
